FAERS Safety Report 13753120 (Version 1)
Quarter: 2017Q3

REPORT INFORMATION
  Report Type: Spontaneous
  Country: US (occurrence: US)
  Receive Date: 20170713
  Receipt Date: 20170713
  Transmission Date: 20171127
  Serious: Yes (Death)
  Sender: FDA-Public Use
  Company Number: None

PATIENT
  Age: 85 Year
  Sex: Male

DRUGS (6)
  1. SENNA LAXATIVE [Concomitant]
     Active Substance: SENNOSIDES
  2. TOLTERODINE [Concomitant]
     Active Substance: TOLTERODINE
  3. APAP/COD [Concomitant]
  4. TRAZODONE [Concomitant]
     Active Substance: TRAZODONE HYDROCHLORIDE
  5. FERROUS SULF [Concomitant]
     Active Substance: FERROUS SULFATE
  6. LUPRON DEPOT [Suspect]
     Active Substance: LEUPROLIDE ACETATE
     Indication: PROSTATE CANCER
     Dosage: 22.5 MG EVERY 3 MONTHS ADMINISTERED AT DR OFFICE
     Dates: start: 20170123

REACTIONS (1)
  - Death [None]
